FAERS Safety Report 8529087-1 (Version None)
Quarter: 2012Q3

REPORT INFORMATION
  Report Type: 
  Country: None (occurrence: None)
  Receive Date: 20120716
  Receipt Date: 20120716
  Transmission Date: 20120928
  Serious: Yes (Hospitalization)
  Sender: FDA-Public Use
  Company Number: None

PATIENT
  Age: 83 Year
  Sex: Male

DRUGS (1)
  1. CLOPIDOGREL [Suspect]
     Indication: ANTICOAGULANT THERAPY
     Dosage: 75 MG 1 X DAY
     Dates: start: 20120610, end: 20120626

REACTIONS (3)
  - PRODUCT SUBSTITUTION ISSUE [None]
  - BLOOD URINE PRESENT [None]
  - DYSURIA [None]
